FAERS Safety Report 4328817-2 (Version None)
Quarter: 2004Q1

REPORT INFORMATION
  Report Type: 
  Country: None (occurrence: None)
  Receive Date: 20040329
  Receipt Date: 20031231
  Transmission Date: 20041129
  Serious: No
  Sender: FDA-Public Use
  Company Number: 03P-163-0242347-00

PATIENT
  Age: 48 Year
  Sex: Female
  Weight: 73.9363 kg

DRUGS (5)
  1. HUMIRA [Suspect]
     Indication: RHEUMATOID ARTHRITIS
     Dosage: 40 MG, 1 IN 2 WK, SUBCUTANEOUS
     Route: 058
     Dates: start: 20030918, end: 20031121
  2. LEFLUNOMIDE [Concomitant]
  3. DICLOFENAC SODIUM [Concomitant]
  4. LEVOTHYROXINE SODIUM [Concomitant]
  5. CEFADORXIL [Concomitant]

REACTIONS (5)
  - BODY TEMPERATURE INCREASED [None]
  - C-REACTIVE PROTEIN INCREASED [None]
  - CELLULITIS [None]
  - EYE SWELLING [None]
  - PRURITUS [None]
